FAERS Safety Report 4694687-6 (Version None)
Quarter: 2005Q2

REPORT INFORMATION
  Report Type: 
  Country: None (occurrence: None)
  Receive Date: 20050620
  Receipt Date: 20050610
  Transmission Date: 20051028
  Serious: Yes (Other)
  Sender: FDA-Public Use
  Company Number: CN-GLAXOSMITHKLINE-B0384623A

PATIENT
  Age: 68 Year
  Sex: Female
  Weight: 52 kg

DRUGS (2)
  1. ZINACEF [Suspect]
     Indication: INFECTION
     Dosage: 1.5G TWICE PER DAY
     Route: 042
     Dates: start: 20031213, end: 20031214
  2. SODIUM CHLORIDE [Concomitant]
     Dosage: 20ML PER DAY
     Dates: start: 20031213, end: 20031214

REACTIONS (3)
  - HYPERHIDROSIS [None]
  - MALAISE [None]
  - OLIGURIA [None]
